FAERS Safety Report 9136922 (Version 2)
Quarter: 2013Q1

REPORT INFORMATION
  Report Type: Spontaneous
  Country: JP (occurrence: JP)
  Receive Date: 20130304
  Receipt Date: 20130307
  Transmission Date: 20140127
  Serious: Yes (Other)
  Sender: FDA-Public Use
  Company Number: JP-ASTRAZENECA-2013SE12877

PATIENT
  Age: 73 Year
  Sex: 0

DRUGS (2)
  1. ATENOLOL [Suspect]
     Route: 048
  2. GLACTIV [Suspect]
     Route: 048

REACTIONS (1)
  - Parkinsonian crisis [Unknown]
